FAERS Safety Report 20091088 (Version 2)
Quarter: 2021Q4

REPORT INFORMATION
  Report Type: Report from Study
  Country: FR (occurrence: FR)
  Receive Date: 20211119
  Receipt Date: 20211203
  Transmission Date: 20220303
  Serious: Yes (Other)
  Sender: FDA-Public Use
  Company Number: FR-ASTELLAS-2021US044111

PATIENT
  Age: 58 Year
  Sex: Male
  Weight: 62 kg

DRUGS (3)
  1. TACROLIMUS [Suspect]
     Active Substance: TACROLIMUS
     Indication: Renal transplant
     Route: 048
     Dates: start: 20160826, end: 20210111
  2. Solupred [Concomitant]
     Indication: Immunosuppressant drug therapy
     Dosage: 5 (UNIT UNKNOWN), DAILY
     Route: 065
     Dates: start: 20160606
  3. CELLCEPT [Concomitant]
     Active Substance: MYCOPHENOLATE MOFETIL
     Indication: Immunosuppressant drug therapy
     Dosage: 500 (UNIT UNKNOWN), DAILY
     Route: 065
     Dates: start: 20160602

REACTIONS (1)
  - Chronic inflammatory demyelinating polyradiculoneuropathy [Recovering/Resolving]

NARRATIVE: CASE EVENT DATE: 20201217
